FAERS Safety Report 6068455-7 (Version None)
Quarter: 2009Q1

REPORT INFORMATION
  Report Type: 
  Country: None (occurrence: None)
  Receive Date: 20090206
  Receipt Date: 20090115
  Transmission Date: 20090719
  Serious: Yes (Hospitalization)
  Sender: FDA-Public Use
  Company Number: US-PFIZER INC-2006155198

PATIENT
  Sex: Male
  Weight: 56.59 kg

DRUGS (12)
  1. BLINDED *PLACEBO [Suspect]
     Indication: HIV TEST POSITIVE
     Route: 048
     Dates: start: 20060328
  2. BLINDED MARAVIROC [Suspect]
     Indication: HIV TEST POSITIVE
     Route: 048
     Dates: start: 20060328
  3. ALBUTEROL [Concomitant]
     Dosage: 2 PUFFS
     Route: 055
     Dates: start: 20050815
  4. COMTREX [Concomitant]
     Dosage: 2 DF
     Route: 048
     Dates: start: 20040617
  5. VALIUM [Concomitant]
     Dosage: QHS
     Route: 048
     Dates: start: 20060821
  6. ALERTONIC [Concomitant]
     Dosage: 1 DF
     Route: 048
     Dates: start: 20060801
  7. SUDAFED 12 HOUR [Concomitant]
     Route: 048
     Dates: start: 20060621
  8. INVIRASE [Concomitant]
     Route: 048
     Dates: start: 20060328
  9. NORVIR [Concomitant]
     Route: 048
     Dates: start: 20060328
  10. COMBIVIR [Concomitant]
     Route: 048
     Dates: start: 20060328
  11. TRUVADA [Concomitant]
     Route: 048
     Dates: start: 20060328
  12. FUZEON [Concomitant]
     Route: 058
     Dates: start: 20060328

REACTIONS (1)
  - PNEUMOTHORAX [None]
